FAERS Safety Report 5975653-7 (Version None)
Quarter: 2008Q4

REPORT INFORMATION
  Report Type: 
  Country: None (occurrence: None)
  Receive Date: 20081124
  Receipt Date: 20081107
  Transmission Date: 20090506
  Serious: Yes (Hospitalization)
  Sender: FDA-Public Use
  Company Number: WAES 0811USA01715

PATIENT
  Age: 43 Year
  Sex: Female
  Weight: 46.7205 kg

DRUGS (4)
  1. CAP VORINOSTAT 200 MG [Suspect]
     Indication: OESOPHAGEAL CANCER METASTATIC
     Dosage: 200 MG/ DAILY/ PO
     Route: 048
     Dates: start: 20081029, end: 20081105
  2. IRINOTECAN HYDROCHLORIDE [Suspect]
     Indication: OESOPHAGEAL CANCER METASTATIC
     Dosage: 129.6 MG/ Q2W/ IV
     Route: 042
     Dates: start: 20081029, end: 20081105
  3. LEUCOVORIN CALCIUM [Suspect]
     Indication: OESOPHAGEAL CANCER METASTATIC
     Dosage: 574 MG/ Q2W/ IV
     Route: 042
     Dates: start: 20081029, end: 20081105
  4. FLUOROURACIL [Suspect]
     Indication: OESOPHAGEAL CANCER METASTATIC
     Dosage: 2592 MG/ Q2W/ IV
     Route: 042
     Dates: start: 20081029, end: 20081105

REACTIONS (12)
  - ANOREXIA [None]
  - BLOOD ALBUMIN DECREASED [None]
  - BLOOD PRESSURE DIASTOLIC INCREASED [None]
  - BODY TEMPERATURE DECREASED [None]
  - CHILLS [None]
  - FATIGUE [None]
  - HAEMATOCRIT DECREASED [None]
  - HYPOPHAGIA [None]
  - INFECTION [None]
  - LYMPHOCYTE COUNT DECREASED [None]
  - PALLOR [None]
  - RED BLOOD CELL COUNT DECREASED [None]
